FAERS Safety Report 18042685 (Version 3)
Quarter: 2020Q3

REPORT INFORMATION
  Report Type: Spontaneous
  Country: TH (occurrence: TH)
  Receive Date: 20200720
  Receipt Date: 20200907
  Transmission Date: 20201105
  Serious: Yes (Death, Other)
  Sender: FDA-Public Use
  Company Number: TH-ROCHE-2642771

PATIENT
  Sex: Male

DRUGS (13)
  1. RITUXIMAB. [Suspect]
     Active Substance: RITUXIMAB
     Dosage: PART OF RICE REGIMEN
     Route: 065
     Dates: start: 20200522
  2. DOXORUBICIN [Suspect]
     Active Substance: DOXORUBICIN
     Indication: DIFFUSE LARGE B-CELL LYMPHOMA
     Dosage: PART OF R?CHOP X 4 CYCLES
     Route: 065
     Dates: start: 20200221, end: 20200502
  3. ETOPOSIDE. [Suspect]
     Active Substance: ETOPOSIDE
     Indication: DIFFUSE LARGE B-CELL LYMPHOMA
     Dosage: PART OF RICE REGIMEN
     Route: 065
     Dates: start: 20200522, end: 20200525
  4. POLATUZUMAB VEDOTIN. [Suspect]
     Active Substance: POLATUZUMAB VEDOTIN
     Indication: DIFFUSE LARGE B-CELL LYMPHOMA
     Dosage: USED IN COMBINATION WITH RITUXIMAB AND BENDAMUSTINE
     Route: 065
     Dates: start: 20200627
  5. PREDNISONE. [Suspect]
     Active Substance: PREDNISONE
     Indication: DIFFUSE LARGE B-CELL LYMPHOMA
     Dosage: PART OF R?CHOP X 4 CYCLES
     Route: 065
     Dates: start: 20200221, end: 20200502
  6. RITUXIMAB. [Suspect]
     Active Substance: RITUXIMAB
     Dosage: USED IN COMBINATION WITH POLATUZUMAB AND BENDAMUSTINE
     Route: 065
     Dates: start: 20200627
  7. CARBOPLATIN. [Suspect]
     Active Substance: CARBOPLATIN
     Indication: DIFFUSE LARGE B-CELL LYMPHOMA
     Dosage: PART OF RICE REGIMEN
     Route: 065
     Dates: start: 20200522, end: 20200525
  8. VINCRISTINE [Suspect]
     Active Substance: VINCRISTINE
     Indication: DIFFUSE LARGE B-CELL LYMPHOMA
     Dosage: PART OF R?CHOP X 4 CYCLES
     Route: 065
     Dates: start: 20200221, end: 20200502
  9. IFOSFAMIDE. [Suspect]
     Active Substance: IFOSFAMIDE
     Indication: DIFFUSE LARGE B-CELL LYMPHOMA
     Dosage: PART OF RICE REGIMEN
     Route: 065
     Dates: start: 20200522, end: 20200525
  10. RITUXIMAB. [Suspect]
     Active Substance: RITUXIMAB
     Indication: DIFFUSE LARGE B-CELL LYMPHOMA
     Dosage: PART OF R?CHOP X 4 CYCLES
     Route: 065
     Dates: start: 20200221, end: 20200502
  11. CYCLOPHOSPHAMIDE. [Suspect]
     Active Substance: CYCLOPHOSPHAMIDE
     Indication: DIFFUSE LARGE B-CELL LYMPHOMA
     Dosage: PART OF R?CHOP X 4 CYCLES
     Route: 065
     Dates: start: 20200221, end: 20200502
  12. METHOTREXATE. [Suspect]
     Active Substance: METHOTREXATE
     Indication: DIFFUSE LARGE B-CELL LYMPHOMA
     Route: 037
     Dates: start: 20200221
  13. BENDAMUSTINE [Suspect]
     Active Substance: BENDAMUSTINE
     Indication: DIFFUSE LARGE B-CELL LYMPHOMA
     Dosage: USED IN COMBINATION WITH RITUXIMAB AND POLATUZUMAB
     Route: 065
     Dates: start: 20200627

REACTIONS (4)
  - Off label use [Unknown]
  - Diffuse large B-cell lymphoma [Fatal]
  - Pyrexia [Unknown]
  - Ill-defined disorder [Unknown]
